FAERS Safety Report 7742489-6 (Version None)
Quarter: 2011Q3

REPORT INFORMATION
  Report Type: 
  Country: None (occurrence: None)
  Receive Date: 20110912
  Receipt Date: 20110906
  Transmission Date: 20111222
  Serious: Yes (Death, Other)
  Sender: FDA-Public Use
  Company Number: GB-ASTELLAS-2011EU006077

PATIENT
  Age: 41 Year
  Sex: Female

DRUGS (3)
  1. METHYLPREDNISOLONE [Suspect]
     Indication: RENAL TRANSPLANT
     Dosage: UNK
     Route: 065
     Dates: start: 20060101
  2. TACROLIMUS [Suspect]
     Indication: RENAL TRANSPLANT
     Dosage: UNK
     Route: 065
     Dates: start: 20060101
  3. CAMPATH [Suspect]
     Indication: RENAL TRANSPLANT
     Dosage: 30 MG, UNKNOWN/D
     Route: 065
     Dates: start: 20060101

REACTIONS (2)
  - ANGIOSARCOMA [None]
  - METASTASES TO LUNG [None]
